FAERS Safety Report 20778548 (Version 1)
Quarter: 2022Q2

REPORT INFORMATION
  Report Type: Spontaneous
  Country: US (occurrence: None)
  Receive Date: 20220503
  Receipt Date: 20220503
  Transmission Date: 20220720
  Serious: Yes (unspecified)
  Sender: FDA-Public Use
  Company Number: None

PATIENT
  Age: 25 Year
  Sex: Female
  Weight: 91.35 kg

DRUGS (7)
  1. COLLAGENASE CLOSTRIDIUM HISTOLYTICUM-AAES [Suspect]
     Active Substance: COLLAGENASE CLOSTRIDIUM HISTOLYTICUM-AAES
     Indication: Cellulite
     Dosage: OTHER QUANTITY : 2 VIAL;?OTHER FREQUENCY : 1X EVERY 21 DAYS;?
     Route: 058
     Dates: start: 20220120, end: 20220217
  2. VENLAFAXINE [Concomitant]
     Active Substance: VENLAFAXINE HYDROCHLORIDE
  3. birth control [Concomitant]
  4. VITAMIN C [Concomitant]
     Active Substance: ASCORBIC ACID
  5. VITAMIN D NOS [Concomitant]
     Active Substance: VITAMIN D NOS
  6. FOLIC ACID [Concomitant]
     Active Substance: FOLIC ACID
  7. DOCUSATE SODIUM [Concomitant]
     Active Substance: DOCUSATE SODIUM

REACTIONS (2)
  - Injection site discolouration [None]
  - Injection site bruising [None]

NARRATIVE: CASE EVENT DATE: 20220321
